FAERS Safety Report 4483191-6 (Version None)
Quarter: 2004Q3

REPORT INFORMATION
  Report Type: 
  Country: None (occurrence: None)
  Receive Date: 20040921
  Receipt Date: 20040617
  Transmission Date: 20050211
  Serious: Yes (Hospitalization)
  Sender: FDA-Public Use
  Company Number: 163-20785-04060367

PATIENT
  Age: 50 Year
  Sex: Male
  Weight: 51.7101 kg

DRUGS (1)
  1. THALOMID [Suspect]
     Indication: SMALL CELL LUNG CANCER STAGE UNSPECIFIED
     Dosage: 200 MG, QHS, ORAL
     Route: 048
     Dates: start: 20040518, end: 20040615

REACTIONS (1)
  - CONVULSION [None]
